FAERS Safety Report 5344209-1 (Version None)
Quarter: 2007Q2

REPORT INFORMATION
  Report Type: 
  Country: None (occurrence: None)
  Receive Date: 20070604
  Receipt Date: 20070528
  Transmission Date: 20071010
  Serious: Yes (Hospitalization)
  Sender: FDA-Public Use
  Company Number: FR-ABBOTT-07P-056-0364911-00

PATIENT
  Sex: Female
  Weight: 78 kg

DRUGS (12)
  1. ODRIK [Suspect]
     Indication: HYPERTENSION
     Route: 048
     Dates: end: 20070214
  2. ODRIK [Suspect]
     Route: 048
     Dates: start: 20070212, end: 20070214
  3. FUROSEMIDE [Suspect]
     Indication: OEDEMA PERIPHERAL
     Route: 048
     Dates: start: 20070123, end: 20070216
  4. HYDROCHLOROTHIAZIDE [Suspect]
     Indication: OEDEMA PERIPHERAL
     Route: 048
     Dates: start: 20070123, end: 20070216
  5. INSULIN [Concomitant]
     Indication: DRUG THERAPY
  6. INSULIN ASPART [Concomitant]
     Indication: DRUG THERAPY
  7. OMEPRAZOLE [Concomitant]
     Indication: DRUG THERAPY
  8. CALCIUM CARBONATE [Concomitant]
     Indication: DRUG THERAPY
  9. ISONIAZID [Concomitant]
     Indication: DRUG THERAPY
  10. AMITRIPTYLINE HCL [Concomitant]
     Indication: DRUG THERAPY
  11. DARBOPOETIN ALFA [Concomitant]
     Indication: DRUG THERAPY
  12. RIFAMPICIN [Concomitant]
     Indication: DRUG THERAPY

REACTIONS (11)
  - ASTHENIA [None]
  - BLOOD PRESSURE INCREASED [None]
  - DEHYDRATION [None]
  - DIARRHOEA [None]
  - DYSPEPSIA [None]
  - MUSCLE SPASMS [None]
  - NAUSEA [None]
  - PROTEINURIA [None]
  - RENAL FAILURE ACUTE [None]
  - SKIN TURGOR DECREASED [None]
  - VOMITING [None]
